FAERS Safety Report 22655558 (Version 1)
Quarter: 2023Q2

REPORT INFORMATION
  Report Type: Spontaneous
  Country: US (occurrence: US)
  Receive Date: 20230629
  Receipt Date: 20230629
  Transmission Date: 20230721
  Serious: No
  Sender: FDA-Public Use
  Company Number: US-AMGEN-USASP2023110131

PATIENT
  Age: 70 Year
  Sex: Male

DRUGS (2)
  1. KYPROLIS [Suspect]
     Active Substance: CARFILZOMIB
     Indication: Plasma cell myeloma
     Dosage: 40 MILLIGRAM, (1 VIAL OF 10 MG KYPROLIS )
     Route: 042
  2. KYPROLIS [Suspect]
     Active Substance: CARFILZOMIB
     Dosage: 40 MILLIGRAM, (1 VIAL OF 30 MG KYPROLIS)
     Route: 042

REACTIONS (1)
  - Intercepted product preparation error [Unknown]

NARRATIVE: CASE EVENT DATE: 20230623
